FAERS Safety Report 17668359 (Version 1)
Quarter: 2020Q2

REPORT INFORMATION
  Report Type: Report from Study
  Country: None (occurrence: US)
  Receive Date: 20200415
  Receipt Date: 20200415
  Transmission Date: 20200713
  Serious: Yes (Other)
  Sender: FDA-Public Use
  Company Number: US-BIOVITRUM-2020US0159

PATIENT
  Sex: Female

DRUGS (1)
  1. KINERET [Suspect]
     Active Substance: ANAKINRA
     Indication: URTICARIA
     Route: 058
     Dates: start: 20190916

REACTIONS (5)
  - Injection site reaction [Unknown]
  - Vitamin B12 decreased [Unknown]
  - Blood magnesium decreased [Unknown]
  - Off label use [Unknown]
  - Angioedema [Unknown]
